FAERS Safety Report 9393106 (Version 2)
Quarter: 2013Q4

REPORT INFORMATION
  Report Type: Spontaneous
  Country: FR (occurrence: FR)
  Receive Date: 20130710
  Receipt Date: 20131127
  Transmission Date: 20140711
  Serious: Yes (Hospitalization)
  Sender: FDA-Public Use
  Company Number: FR-PFIZER INC-2013201779

PATIENT
  Age: 82 Year
  Sex: Female

DRUGS (8)
  1. AMIODARONE HCL [Suspect]
     Indication: ATRIAL FIBRILLATION
     Dosage: 200 MG, CYCLIC (DAILY 5 DAYS PER WEEK)
     Route: 048
     Dates: start: 201302
  2. XARELTO [Interacting]
     Indication: ATRIAL FIBRILLATION
     Dosage: 1 TABLET, UNK
     Route: 048
     Dates: start: 201302, end: 20130416
  3. LASILIX [Concomitant]
     Dosage: UNK
  4. LERCAN [Concomitant]
     Dosage: UNK
  5. CARDENSIEL [Concomitant]
     Dosage: UNK
  6. OMEPRAZOLE [Concomitant]
     Dosage: UNK
  7. NOCTAMIDE [Concomitant]
     Dosage: UNK
  8. DEROXAT [Concomitant]
     Dosage: UNK

REACTIONS (3)
  - Drug interaction [Recovered/Resolved with Sequelae]
  - Cerebral haematoma [Recovered/Resolved with Sequelae]
  - Deep vein thrombosis [Recovered/Resolved with Sequelae]
